FAERS Safety Report 17216525 (Version 1)
Quarter: 2019Q4

REPORT INFORMATION
  Report Type: Spontaneous
  Country: FR (occurrence: FR)
  Receive Date: 20191230
  Receipt Date: 20191230
  Transmission Date: 20200122
  Serious: Yes (Hospitalization)
  Sender: FDA-Public Use
  Company Number: FR-AUROBINDO-AUR-APL-2019-108028

PATIENT
  Age: 32 Year
  Sex: Female

DRUGS (1)
  1. IBUPROFEN. [Suspect]
     Active Substance: IBUPROFEN
     Indication: PRODUCT USED FOR UNKNOWN INDICATION
     Dosage: 200 MILLIGRAM IN TOTAL
     Route: 048
     Dates: start: 20191117, end: 20191117

REACTIONS (7)
  - Ultrasound antenatal screen [Recovered/Resolved]
  - Maternal exposure during pregnancy [Recovered/Resolved]
  - Contraindicated product administered [Recovered/Resolved]
  - Investigation [Recovered/Resolved]
  - Foetal non-stress test [Recovered/Resolved]
  - Foetal exposure during pregnancy [Recovered/Resolved]
  - Product administration error [Recovered/Resolved]

NARRATIVE: CASE EVENT DATE: 20191117
